FAERS Safety Report 4928793-5 (Version None)
Quarter: 2006Q1

REPORT INFORMATION
  Report Type: 
  Country: None (occurrence: None)
  Receive Date: 20060227
  Receipt Date: 20060227
  Transmission Date: 20060701
  Serious: No
  Sender: FDA-Public Use
  Company Number: None

PATIENT
  Age: 51 Year
  Sex: Male
  Weight: 87.5442 kg

DRUGS (1)
  1. VISIPAQUE [Suspect]
     Indication: CATHETERISATION CARDIAC
     Dosage: 116 CC IC

REACTIONS (1)
  - RASH [None]
